FAERS Safety Report 5216171-3 (Version None)
Quarter: 2007Q1

REPORT INFORMATION
  Report Type: 
  Country: None (occurrence: None)
  Receive Date: 20070123
  Receipt Date: 20070110
  Transmission Date: 20070707
  Serious: Yes (Other)
  Sender: FDA-Public Use
  Company Number: GB-ELI_LILLY_AND_COMPANY-GB200701002062

PATIENT
  Sex: Female

DRUGS (2)
  1. FLUOXETINE [Suspect]
     Dosage: UNK, UNKNOWN
     Route: 065
     Dates: start: 20060601, end: 20060701
  2. FLUOXETINE [Suspect]
     Dosage: 20 MG, DAILY (1/D)
     Route: 065
     Dates: start: 20061201

REACTIONS (2)
  - NEUTROPENIA [None]
  - NEUTROPHIL COUNT DECREASED [None]
